FAERS Safety Report 9707815 (Version 1)
Quarter: 2013Q4

REPORT INFORMATION
  Report Type: Spontaneous
  Country: US (occurrence: US)
  Receive Date: 20131125
  Receipt Date: 20131125
  Transmission Date: 20140711
  Serious: Yes (Other)
  Sender: FDA-Public Use
  Company Number: US-BAYER-2013-141297

PATIENT
  Age: 18 Year
  Sex: Male
  Weight: 72.56 kg

DRUGS (1)
  1. ALEVE CAPLET [Suspect]
     Dosage: 10-12 DF,ONCE
     Route: 048
     Dates: start: 20131115

REACTIONS (2)
  - Self injurious behaviour [None]
  - Extra dose administered [None]
